FAERS Safety Report 13987428 (Version 1)
Quarter: 2017Q3

REPORT INFORMATION
  Report Type: Spontaneous
  Country: JP (occurrence: JP)
  Receive Date: 20170919
  Receipt Date: 20170919
  Transmission Date: 20171128
  Serious: Yes (Death)
  Sender: FDA-Public Use
  Company Number: JP-SHIONOGI, INC-2017000862

PATIENT
  Sex: Male

DRUGS (2)
  1. OXIFAST [Concomitant]
     Active Substance: OXYCODONE
     Indication: RECTAL CANCER
     Route: 042
  2. SYMPROIC [Suspect]
     Active Substance: NALDEMEDINE
     Indication: CONSTIPATION
     Dosage: 0.2 MG, QD
     Route: 048

REACTIONS (2)
  - Rectal cancer [Fatal]
  - Abdominal pain [Unknown]
